FAERS Safety Report 23664859 (Version 1)
Quarter: 2024Q1

REPORT INFORMATION
  Report Type: Spontaneous
  Country: DE (occurrence: DE)
  Receive Date: 20240322
  Receipt Date: 20240322
  Transmission Date: 20240410
  Serious: Yes (Hospitalization, Disabling, Other)
  Sender: FDA-Public Use
  Company Number: DE-002147023-NVSC2020DE007012

PATIENT
  Sex: Male
  Weight: 150 kg

DRUGS (88)
  1. VALSARTAN [Suspect]
     Active Substance: VALSARTAN
     Indication: Hypertension
     Dosage: UNK, BID (ONCE IN THE MORNING, ONCE IN THE EVENING (1-0-1))
     Route: 065
  2. VALSARTAN [Suspect]
     Active Substance: VALSARTAN
     Indication: Hypertension
     Dosage: QD (IN THE MORNING)
     Route: 065
  3. OMEPRAZOLE [Concomitant]
     Active Substance: OMEPRAZOLE
     Indication: Product used for unknown indication
     Dosage: QD (MORNING)
     Route: 065
  4. JELLIPROCT [Concomitant]
     Indication: Product used for unknown indication
     Dosage: UNK
     Route: 065
     Dates: start: 201901
  5. BEPANTHEN [Concomitant]
     Indication: Product used for unknown indication
     Dosage: UNK (WOUND AND HEALING, AS NEEDED)
     Route: 065
  6. BEPANTHEN [Concomitant]
     Indication: Product used for unknown indication
     Dosage: UNK (WOUND AND HEALING, AS NEEDED)
     Route: 065
  7. BEPANTHEN [Concomitant]
     Indication: Product used for unknown indication
     Dosage: UNK (WOUND AND HEALING, AS NEEDED)
     Route: 065
  8. BISOPROLOL [Concomitant]
     Active Substance: BISOPROLOL\BISOPROLOL FUMARATE
     Indication: Product used for unknown indication
     Dosage: 5, BID (IN THE MORNING, ONCE IN THE EVENING (1-0-1))
     Route: 065
     Dates: start: 201504
  9. CANDESARTAN ABZ [Concomitant]
     Indication: Hypertension
     Dosage: QD (ONCE DAILY IN THE MORNING (1-0-0))
     Route: 065
  10. NOVALGIN [Concomitant]
     Indication: Product used for unknown indication
     Dosage: (4X DAILY IF NEEDED)
     Route: 065
  11. CANDESARTAN CILEXETIL [Concomitant]
     Active Substance: CANDESARTAN CILEXETIL
     Indication: Hypertension
     Dosage: UNK
     Route: 065
  12. CANDESARTAN CILEXETIL [Concomitant]
     Active Substance: CANDESARTAN CILEXETIL
     Indication: Hypertension
     Dosage: UNK
     Route: 065
  13. CANDESARTAN CILEXETIL [Concomitant]
     Active Substance: CANDESARTAN CILEXETIL
     Indication: Hypertension
     Dosage: UNK
     Route: 065
  14. LASIX [Concomitant]
     Active Substance: FUROSEMIDE
     Indication: Product used for unknown indication
     Route: 042
     Dates: start: 201912, end: 201912
  15. LASIX [Concomitant]
     Active Substance: FUROSEMIDE
     Indication: Product used for unknown indication
     Dosage: (ONCE DOSE IN THE MORNING, HALF OF A DOSE AT NOON (1-1/2-0))
     Route: 042
     Dates: start: 201912, end: 201912
  16. NOVODIGAL MITE [Concomitant]
     Indication: Product used for unknown indication
     Dosage: UNK 0.1, QD (ONCE IN THE MORNING (1-0-0))
     Route: 065
     Dates: start: 201410
  17. FUROSEMIDE [Concomitant]
     Active Substance: FUROSEMIDE
     Indication: Product used for unknown indication
     Dosage: UNK (20)
     Route: 065
  18. FUROSEMIDE [Concomitant]
     Active Substance: FUROSEMIDE
     Indication: Product used for unknown indication
     Route: 065
  19. FUROSEMIDE [Concomitant]
     Active Substance: FUROSEMIDE
     Indication: Product used for unknown indication
     Dosage: QD (IN THE MORNING (1-0-0))
     Route: 065
     Dates: start: 201910
  20. FUROSEMIDE [Concomitant]
     Active Substance: FUROSEMIDE
     Indication: Product used for unknown indication
     Dosage: UNK (20)
     Route: 065
  21. RAMIPRIL [Concomitant]
     Active Substance: RAMIPRIL
     Indication: Product used for unknown indication
     Dosage: (HALF OF A DOSAGE IN THE MORNING AND IN THE EVENING (0.5-0-0.5))
     Route: 065
     Dates: start: 201410
  22. AMIODARONE [Concomitant]
     Active Substance: AMIODARONE
     Indication: Product used for unknown indication
     Dosage: UNK (200)
     Route: 065
     Dates: start: 201411
  23. BISOPROLOL FUMARATE [Concomitant]
     Active Substance: BISOPROLOL FUMARATE
     Indication: Product used for unknown indication
     Dosage: UNK, QD (? X 5 MG)
     Route: 065
  24. BISOPROLOL FUMARATE [Concomitant]
     Active Substance: BISOPROLOL FUMARATE
     Indication: Product used for unknown indication
     Dosage: UNK, QD (? X 5 MG)
     Route: 065
  25. BISOPROLOL FUMARATE [Concomitant]
     Active Substance: BISOPROLOL FUMARATE
     Indication: Product used for unknown indication
     Dosage: 5 MG, QD (MORNING)
     Route: 065
  26. BISOPROLOL FUMARATE [Concomitant]
     Active Substance: BISOPROLOL FUMARATE
     Indication: Product used for unknown indication
     Dosage: UNK, QD (? X 5 MG)
     Route: 065
  27. SACUBITRIL [Suspect]
     Active Substance: SACUBITRIL
     Indication: Dilated cardiomyopathy
     Dosage: 100 MG, BID ((49/51 MG, MORNING AND EVENING))
     Route: 065
  28. SACUBITRIL [Suspect]
     Active Substance: SACUBITRIL
     Indication: Dilated cardiomyopathy
     Dosage: 200 MG, BID (97/103 MG, MORNING AND EVENING)
     Route: 065
  29. HEPARIN [Concomitant]
     Active Substance: HEPARIN SODIUM
     Indication: Biopsy bone marrow
     Dosage: 15000 IU + 10000 IU
     Route: 042
     Dates: start: 20150220, end: 20150220
  30. MEPIVACAINE HYDROCHLORIDE [Concomitant]
     Active Substance: MEPIVACAINE HYDROCHLORIDE
     Indication: Biopsy bone marrow
     Dosage: 15 ML WITH 1%
     Route: 065
     Dates: start: 20191218, end: 20191218
  31. MEPIVACAINE HYDROCHLORIDE [Concomitant]
     Active Substance: MEPIVACAINE HYDROCHLORIDE
     Indication: Biopsy bone marrow
     Dosage: UNK
     Route: 065
     Dates: start: 20150220, end: 20150220
  32. HYDROCHLOROTHIAZIDE [Concomitant]
     Active Substance: HYDROCHLOROTHIAZIDE
     Indication: Product used for unknown indication
     Dosage: QD (ONCE DAILY IN THE MORNING (1-0-0))
     Route: 065
     Dates: start: 201410
  33. HYDROCHLOROTHIAZIDE [Concomitant]
     Active Substance: HYDROCHLOROTHIAZIDE
     Indication: Product used for unknown indication
     Dosage: 2.5 MG, BID (ONCE IN THE MORNING, ONCE IN THE EVENING (1-0-1))
     Route: 065
  34. PIROXICAM [Concomitant]
     Active Substance: PIROXICAM
     Indication: Product used for unknown indication
     Route: 065
     Dates: start: 201507
  35. BISOPROLOL [Concomitant]
     Active Substance: BISOPROLOL\BISOPROLOL FUMARATE
     Indication: Product used for unknown indication
     Dosage: UNK, QD (1.5X 2.5 MG, MORNING)
     Route: 065
  36. BISOPROLOL [Concomitant]
     Active Substance: BISOPROLOL\BISOPROLOL FUMARATE
     Indication: Product used for unknown indication
     Dosage: (1.5 OF A DOSAGE IN THE MORNING, 1 DOSAGE IN THE EVENING (1.5-0-1))
     Route: 065
  37. BISOPROLOL [Concomitant]
     Active Substance: BISOPROLOL\BISOPROLOL FUMARATE
     Indication: Product used for unknown indication
     Dosage: (1 DOSAGE IN THE MORNING, HALF OF A DOSAGE IN THE EVENING (1-0-1/2))
     Route: 065
  38. BISOPROLOL [Concomitant]
     Active Substance: BISOPROLOL\BISOPROLOL FUMARATE
     Indication: Product used for unknown indication
     Dosage: 5 MG, BID (FILM-COATED TABLETS, MORNING AND EVENING))
     Route: 048
  39. BISOPROLOL [Concomitant]
     Active Substance: BISOPROLOL\BISOPROLOL FUMARATE
     Indication: Product used for unknown indication
     Dosage: UNK, QD (MORNING)
     Route: 065
  40. BISOPROLOL [Concomitant]
     Active Substance: BISOPROLOL\BISOPROLOL FUMARATE
     Indication: Product used for unknown indication
     Dosage: 2 DOSAGE FORM, BID (TWICE IN THE MORNING, TWICE IN THE EVENING (2-0-2)
     Route: 065
  41. BISOPROLOL [Concomitant]
     Active Substance: BISOPROLOL\BISOPROLOL FUMARATE
     Indication: Product used for unknown indication
     Dosage: 2.5 MG, BID (ONCE IN THE MORNING, ONCE IN THE EVENING (1-0-1))
     Route: 048
  42. BISOPROLOL [Concomitant]
     Active Substance: BISOPROLOL\BISOPROLOL FUMARATE
     Indication: Product used for unknown indication
     Dosage: UNK, QD (MORNING)
     Route: 065
  43. BISOPROLOL [Concomitant]
     Active Substance: BISOPROLOL\BISOPROLOL FUMARATE
     Indication: Product used for unknown indication
     Dosage: 7.5, QD
     Route: 065
  44. BISOPROLOL [Concomitant]
     Active Substance: BISOPROLOL\BISOPROLOL FUMARATE
     Indication: Product used for unknown indication
     Dosage: UNK, QD (1.5X 2.5 MG, MORNING)
     Route: 065
  45. BISOPROLOL [Concomitant]
     Active Substance: BISOPROLOL\BISOPROLOL FUMARATE
     Indication: Product used for unknown indication
     Dosage: 7.5, QD
     Route: 065
  46. BISOPROLOL [Concomitant]
     Active Substance: BISOPROLOL\BISOPROLOL FUMARATE
     Indication: Product used for unknown indication
     Dosage: UNK, BID (1.5 OF A DOSAGE IN THE MORNING, 1 DOSAGE IN THE EVENING (1.5-0-1)
     Route: 065
  47. BISOPROLOL [Concomitant]
     Active Substance: BISOPROLOL\BISOPROLOL FUMARATE
     Indication: Product used for unknown indication
     Dosage: 7.5, QD
     Route: 065
  48. BISOPROLOL [Concomitant]
     Active Substance: BISOPROLOL\BISOPROLOL FUMARATE
     Indication: Product used for unknown indication
     Dosage: UNK, BID (1.5 OF A DOSAGE IN THE MORNING, 1 DOSAGE IN THE EVENING (1.5-0-1)
     Route: 065
  49. BISOPROLOL [Concomitant]
     Active Substance: BISOPROLOL\BISOPROLOL FUMARATE
     Indication: Product used for unknown indication
     Dosage: UNK, QD (MORNING)
     Route: 065
  50. BISOPROLOL [Concomitant]
     Active Substance: BISOPROLOL\BISOPROLOL FUMARATE
     Indication: Product used for unknown indication
     Dosage: UNK, QD (1.5X 2.5 MG, MORNING)
     Route: 065
  51. BISOPROLOL [Concomitant]
     Active Substance: BISOPROLOL\BISOPROLOL FUMARATE
     Indication: Product used for unknown indication
     Dosage: UNK, BID (1.5 OF A DOSAGE IN THE MORNING, 1 DOSAGE IN THE EVENING (1.5-0-1)
     Route: 065
  52. ALLOPURINOL [Concomitant]
     Active Substance: ALLOPURINOL
     Indication: Product used for unknown indication
     Dosage: QD (EVENING)
     Route: 065
  53. AJMALINE [Concomitant]
     Active Substance: AJMALINE
     Indication: Product used for unknown indication
     Route: 065
     Dates: start: 20150220, end: 20150220
  54. VALSARTAN [Suspect]
     Active Substance: VALSARTAN
     Indication: Hypertension
     Dosage: 320MG/25MG, QD (DAILY IN THE MORNING)
     Route: 065
     Dates: start: 201710, end: 201801
  55. VALSARTAN [Suspect]
     Active Substance: VALSARTAN
     Indication: Hypertension
     Dosage: 320MG/25MG, QD (DAILY IN THE MORNING)
     Route: 065
     Dates: start: 201804, end: 201807
  56. FENTANYL [Concomitant]
     Active Substance: FENTANYL\FENTANYL CITRATE
     Indication: Product used for unknown indication
     Route: 065
     Dates: start: 20150220, end: 20150220
  57. TORSEMIDE [Concomitant]
     Active Substance: TORSEMIDE
     Indication: Product used for unknown indication
     Dosage: QD (ONCE DAILY IN THE MORNING (1-0-0)
     Route: 065
  58. TORSEMIDE [Concomitant]
     Active Substance: TORSEMIDE
     Indication: Product used for unknown indication
     Dosage: QD (ONCE DAILY IN THE MORNING (1-0-0)
     Route: 065
  59. TORSEMIDE [Concomitant]
     Active Substance: TORSEMIDE
     Indication: Product used for unknown indication
     Dosage: UNK (ONE DOSE IN THE MORNING, HALF OF A DOSAGE AT NOON (1-1/2-0))
     Route: 065
     Dates: start: 201411
  60. VALSARTAN [Suspect]
     Active Substance: VALSARTAN
     Indication: Hypertension
     Dosage: 80 MG (DAILY IN THE MORNING / ONE DOSE IN THE MORNING, HALF OF A DOSE IN THE EVENING (1-0-1/2))
     Route: 065
     Dates: start: 201411, end: 2015
  61. VALSARTAN [Suspect]
     Active Substance: VALSARTAN
     Indication: Hypertension
     Dosage: 320/25 MG, QD (DAILY IN THE MORNING)
     Route: 065
     Dates: start: 201801, end: 201804
  62. VALSARTAN [Suspect]
     Active Substance: VALSARTAN
     Indication: Hypertension
     Dosage: 320/25 MG, QD (DAILY IN THE MORNING)
     Route: 065
     Dates: start: 201707, end: 201710
  63. VALSARTAN [Suspect]
     Active Substance: VALSARTAN
     Indication: Hypertension
     Dosage: 25 MG, QD
     Route: 065
     Dates: start: 2015
  64. VALSARTAN [Suspect]
     Active Substance: VALSARTAN
     Indication: Hypertension
     Dosage: 80 MG, QD (DAILY IN THE MORNING)
     Route: 065
     Dates: start: 201412, end: 2015
  65. VALSARTAN [Suspect]
     Active Substance: VALSARTAN
     Indication: Hypertension
     Route: 065
  66. VALSARTAN [Suspect]
     Active Substance: VALSARTAN
     Indication: Hypertension
     Dosage: 320/25 MG, QD (DAILY IN THE MORNING)
     Route: 065
     Dates: start: 201607, end: 201704
  67. VALSARTAN [Suspect]
     Active Substance: VALSARTAN
     Indication: Hypertension
     Dosage: 320/25 MG, QD (DAILY IN THE MORNING)
     Route: 065
     Dates: start: 20150831, end: 201605
  68. TORASEMIDE HEXAL [Concomitant]
     Indication: Product used for unknown indication
     Route: 065
     Dates: start: 201412
  69. PANTOPRAZOLE [Concomitant]
     Active Substance: PANTOPRAZOLE
     Indication: Product used for unknown indication
     Dosage: QD
     Route: 065
  70. NITRENDIPINE [Concomitant]
     Active Substance: NITRENDIPINE
     Indication: Product used for unknown indication
     Dosage: UNK
     Route: 060
     Dates: start: 201910
  71. TORSEMIDE [Concomitant]
     Active Substance: TORSEMIDE
     Indication: Product used for unknown indication
     Dosage: QD (ONCE DAILY IN THE MORNING (1-0-0))
     Route: 065
  72. TORSEMIDE [Concomitant]
     Active Substance: TORSEMIDE
     Indication: Product used for unknown indication
     Dosage: 10 MG, BID (ONCE IN THE MORNING, ONCE AT NOON (1-1-0))
     Route: 065
  73. VERAPAMIL HYDROCHLORIDE [Concomitant]
     Active Substance: VERAPAMIL HYDROCHLORIDE
     Indication: Product used for unknown indication
     Dosage: 120 MG, TID (ONCE IN THE MORNING, ONCE AT NOON, ONCE IN THE EVENING (1-1-1))
     Route: 065
  74. DEXAMETHASONE [Concomitant]
     Active Substance: DEXAMETHASONE
     Indication: Product used for unknown indication
     Route: 065
     Dates: start: 201507
  75. OXYGEN [Concomitant]
     Active Substance: OXYGEN
     Indication: Biopsy bone marrow
     Dosage: 2 L UP TO 6 L
     Route: 065
     Dates: start: 20191218, end: 20191218
  76. RAMIPRIL [Concomitant]
     Active Substance: RAMIPRIL
     Indication: Product used for unknown indication
     Dosage: QD (ONCE DAILY IN THE MORNING (1-0-0))
     Route: 065
  77. PROPOFOL [Concomitant]
     Active Substance: PROPOFOL
     Indication: Endoscopy
     Route: 065
     Dates: start: 20191218, end: 20191218
  78. PROPOFOL [Concomitant]
     Active Substance: PROPOFOL
     Indication: Endoscopy
     Route: 065
     Dates: start: 20150220, end: 20150220
  79. PROPOFOL [Concomitant]
     Active Substance: PROPOFOL
     Indication: Endoscopy
     Route: 065
     Dates: start: 20191213, end: 20191213
  80. NASIC CUR [Concomitant]
     Indication: Product used for unknown indication
     Dosage: UNK, AS NEEDED (NOSE)
     Route: 065
     Dates: start: 201911
  81. AMIODARONE [Suspect]
     Active Substance: AMIODARONE
     Indication: Atrial fibrillation
     Dosage: UNK
     Route: 065
  82. ZOPICLONE [Concomitant]
     Active Substance: ZOPICLONE
     Indication: Product used for unknown indication
     Dosage: 7.5 MG, PRN  (AS NEEDED)
     Route: 048
  83. BISOPROLOL FUMARATE [Concomitant]
     Active Substance: BISOPROLOL FUMARATE
     Indication: Product used for unknown indication
     Dosage: 5 MG, BID (ONCE IN THE MORNING, ONCE IN THE EVENING (1-0-1))
     Route: 048
  84. SPIRONOLACTONE [Suspect]
     Active Substance: SPIRONOLACTONE
     Indication: Cardiac failure
     Dosage: UNK
     Route: 065
  85. DIPYRONE [Concomitant]
     Active Substance: DIPYRONE
     Indication: Product used for unknown indication
     Dosage: 4 DOSAGE FORM, QD (500 MG / 30 GTT)
     Route: 065
  86. VALSARTAN [Concomitant]
     Active Substance: VALSARTAN
     Indication: Product used for unknown indication
     Dosage: UNK, QD (320/25 MG, IN MORNING)
     Route: 065
  87. VALSARTAN [Concomitant]
     Active Substance: VALSARTAN
     Indication: Product used for unknown indication
     Dosage: UNK, QD (320/25 MG, IN MORNING)
     Route: 065
  88. VALSARTAN [Concomitant]
     Active Substance: VALSARTAN
     Indication: Product used for unknown indication
     Dosage: UNK, QD (320/25 MG, IN MORNING)
     Route: 065

REACTIONS (72)
  - Respiratory disorder [Unknown]
  - Gastrointestinal neoplasm [Unknown]
  - Hypothyroidism [Unknown]
  - Mitral valve incompetence [Unknown]
  - Metabolic syndrome [Unknown]
  - Colon neoplasm [Unknown]
  - Hyperthyroidism [Unknown]
  - Ventricular extrasystoles [Unknown]
  - Myocarditis [Unknown]
  - Product use in unapproved indication [Unknown]
  - Pruritus [Unknown]
  - Motor dysfunction [Unknown]
  - Gastrointestinal tract adenoma [Unknown]
  - Small intestine adenocarcinoma [Unknown]
  - Sphincter of Oddi dysfunction [Unknown]
  - Deafness [Unknown]
  - Pleural effusion [Unknown]
  - Somnolence [Unknown]
  - Body fat disorder [Unknown]
  - Insomnia [Unknown]
  - Middle insomnia [Unknown]
  - Escherichia bacteraemia [Unknown]
  - Obstructive sleep apnoea syndrome [Unknown]
  - Emotional distress [Unknown]
  - Gastrooesophageal reflux disease [Unknown]
  - Developmental hip dysplasia [Unknown]
  - Arthralgia [Unknown]
  - Ascites [Unknown]
  - Ventricular enlargement [Unknown]
  - Memory impairment [Unknown]
  - Atrial fibrillation [Unknown]
  - Goitre [Unknown]
  - Cardiovascular disorder [Unknown]
  - Tricuspid valve incompetence [Unknown]
  - Depression [Unknown]
  - Inguinal hernia [Unknown]
  - Rectal neoplasm [Unknown]
  - Gastrointestinal dysplasia [Unknown]
  - Panic attack [Unknown]
  - Pulmonary congestion [Unknown]
  - Dyspnoea exertional [Unknown]
  - Myocardial necrosis marker increased [Unknown]
  - Discouragement [Unknown]
  - Sinonasal obstruction [Unknown]
  - Aortic valve incompetence [Unknown]
  - Adenoma benign [Unknown]
  - Ulcer [Recovered/Resolved]
  - Cardiac dysfunction [Unknown]
  - Tracheal disorder [Unknown]
  - Palpitations [Unknown]
  - Gout [Unknown]
  - Waldenstrom^s macroglobulinaemia [Unknown]
  - Left ventricular dysfunction [Unknown]
  - Bundle branch block left [Unknown]
  - Multiple sclerosis [Unknown]
  - Myocardial infarction [Unknown]
  - Dilated cardiomyopathy [Unknown]
  - Acute kidney injury [Unknown]
  - Hypotension [Unknown]
  - Rheumatoid arthritis [Unknown]
  - Urinary incontinence [Unknown]
  - Quality of life decreased [Unknown]
  - Urinary tract infection [Unknown]
  - General physical health deterioration [Unknown]
  - Gait disturbance [Unknown]
  - Gastritis erosive [Unknown]
  - Haemorrhoidal haemorrhage [Unknown]
  - Dyspnoea at rest [Recovered/Resolved]
  - Gammopathy [Unknown]
  - Cholecystitis chronic [Unknown]
  - Sleep disorder [Unknown]
  - Cough [Unknown]
